FAERS Safety Report 9253848 (Version 1)
Quarter: 2013Q2

REPORT INFORMATION
  Report Type: Spontaneous
  Country: US (occurrence: None)
  Receive Date: 20130422
  Receipt Date: 20130422
  Transmission Date: 20140414
  Serious: Yes (Other)
  Sender: FDA-Public Use
  Company Number: None

PATIENT
  Age: 25 Year
  Sex: Male
  Weight: 81.65 kg

DRUGS (3)
  1. CARBAMAZEPINE [Suspect]
     Indication: HEAD INJURY
     Dosage: 300 MG  3 X DAILY  PO
     Route: 048
  2. CARBAMAZEPINE [Suspect]
     Indication: POST-TRAUMATIC EPILEPSY
     Dosage: 300 MG  3 X DAILY  PO
     Route: 048
  3. CARBAMAZEPINE [Suspect]
     Indication: CONVULSION
     Dosage: 300 MG  3 X DAILY  PO
     Route: 048

REACTIONS (1)
  - Convulsion [None]
